FAERS Safety Report 8795486 (Version 4)
Quarter: 2013Q1

REPORT INFORMATION
  Report Type: Spontaneous
  Country: US (occurrence: US)
  Receive Date: 20120917
  Receipt Date: 20130125
  Transmission Date: 20140127
  Serious: Yes (Other)
  Sender: FDA-Public Use
  Company Number: US-PFIZER INC-2012227390

PATIENT
  Age: 58 Year
  Sex: Male
  Weight: 83.45 kg

DRUGS (7)
  1. LYRICA [Suspect]
     Indication: NEUROPATHY PERIPHERAL
     Dosage: UNK
     Dates: start: 20120905
  2. LYRICA [Suspect]
     Indication: NEURALGIA
     Dosage: UNK
     Dates: end: 2012
  3. GABAPENTIN [Suspect]
     Indication: NEURALGIA
     Dosage: UNK
     Dates: start: 2012, end: 2012
  4. GABAPENTIN [Suspect]
     Indication: NEURALGIA
  5. NORCO [Suspect]
     Indication: NEURALGIA
     Dosage: UNK
     Dates: start: 2012, end: 2012
  6. NORCO [Suspect]
     Indication: CROHN^S DISEASE
  7. VILAZODONE HYDROCHLORIDE [Concomitant]
     Indication: MENTAL DISORDER
     Dosage: 40 MG, DAILY

REACTIONS (33)
  - Suicide attempt [Recovered/Resolved]
  - Suicidal ideation [Recovered/Resolved]
  - Bipolar disorder [Recovering/Resolving]
  - Cerebrovascular accident [Unknown]
  - Cardiac disorder [Unknown]
  - Loss of consciousness [Unknown]
  - Obsessive-compulsive disorder [Recovering/Resolving]
  - Hallucination [Recovering/Resolving]
  - Weight decreased [Recovering/Resolving]
  - Hypoaesthesia [Recovering/Resolving]
  - Muscular weakness [Unknown]
  - Vertigo [Not Recovered/Not Resolved]
  - Bedridden [Recovering/Resolving]
  - Crohn^s disease [Unknown]
  - Mental impairment [Unknown]
  - Blister [Unknown]
  - Personality disorder [Unknown]
  - Depression [Unknown]
  - Social avoidant behaviour [Recovering/Resolving]
  - Anorectal disorder [Recovering/Resolving]
  - Dyspnoea [Recovering/Resolving]
  - Rash [Unknown]
  - Myalgia [Recovering/Resolving]
  - Tongue disorder [Recovering/Resolving]
  - Feeling abnormal [Unknown]
  - Thinking abnormal [Unknown]
  - Abnormal dreams [Recovering/Resolving]
  - Nervousness [Not Recovered/Not Resolved]
  - Pain [Recovered/Resolved]
  - Anxiety [Unknown]
  - Confusional state [Unknown]
  - Memory impairment [Unknown]
  - Abnormal behaviour [Unknown]
